FAERS Safety Report 24318898 (Version 1)
Quarter: 2024Q3

REPORT INFORMATION
  Report Type: Spontaneous
  Country: US (occurrence: US)
  Receive Date: 20240913
  Receipt Date: 20240913
  Transmission Date: 20241016
  Serious: No
  Sender: SANDOZ
  Company Number: US-002147023-PHEH2015US013971

PATIENT
  Sex: Female

DRUGS (1)
  1. RECLAST [Suspect]
     Active Substance: ZOLEDRONIC ACID
     Indication: Product used for unknown indication
     Dosage: UNK
     Route: 042
     Dates: start: 2015

REACTIONS (4)
  - Paraesthesia [Not Recovered/Not Resolved]
  - Myalgia [Unknown]
  - Headache [Unknown]
  - Insomnia [Unknown]
